FAERS Safety Report 5721041-8 (Version None)
Quarter: 2008Q2

REPORT INFORMATION
  Report Type: 
  Country: None (occurrence: None)
  Receive Date: 20080425
  Receipt Date: 20080419
  Transmission Date: 20081010
  Serious: Yes (Other)
  Sender: FDA-Public Use
  Company Number: CHPA2008US06934

PATIENT
  Age: 24 Year
  Sex: Female
  Weight: 47.2 kg

DRUGS (2)
  1. MAALOX ANTIACID/ANTIGAS MAX STR MULTI SYMPTOM (MAGNESIUM HYDROXIDE, AL [Suspect]
     Indication: FLATULENCE
     Dosage: 2 TSP, QD, ORAL
     Route: 048
     Dates: start: 20080418
  2. REGLAN [Suspect]
     Indication: STOMACH DISCOMFORT
     Dosage: ORAL
     Route: 048
     Dates: start: 20080417, end: 20080419

REACTIONS (2)
  - SPEECH DISORDER [None]
  - SWOLLEN TONGUE [None]
